FAERS Safety Report 6791391-5 (Version None)
Quarter: 2010Q2

REPORT INFORMATION
  Report Type: 
  Country: None (occurrence: None)
  Receive Date: 20100621
  Receipt Date: 20100611
  Transmission Date: 20101027
  Serious: Yes (Other)
  Sender: FDA-Public Use
  Company Number: 2010SP030231

PATIENT
  Age: 32 Year
  Sex: Female

DRUGS (2)
  1. PEG-INTRON (PEGINTERFERON ALFA-2B /01543001/) [Suspect]
     Indication: HEPATITIS C
     Dosage: 100MCG;
     Dates: start: 20090824, end: 20100408
  2. RIBAVIRIN [Concomitant]
     Indication: DRUG USE FOR UNKNOWN INDICATION
     Dosage: 200 MG
     Dates: start: 20090824, end: 20100408

REACTIONS (6)
  - DRUG EXPOSURE DURING PREGNANCY [None]
  - PELVIC INFLAMMATORY DISEASE [None]
  - POLYCYSTIC OVARIES [None]
  - PREGNANCY [None]
  - UTERINE LEIOMYOMA [None]
  - VIRAL LOAD INCREASED [None]
